FAERS Safety Report 8015442-5 (Version None)
Quarter: 2011Q4

REPORT INFORMATION
  Report Type: 
  Country: None (occurrence: None)
  Receive Date: 20111230
  Receipt Date: 20111220
  Transmission Date: 20120403
  Serious: Yes (Hospitalization)
  Sender: FDA-Public Use
  Company Number: DE-BRISTOL-MYERS SQUIBB COMPANY-16306433

PATIENT
  Age: 27 Year
  Sex: Female

DRUGS (8)
  1. ETOPOSIDE [Suspect]
     Indication: HODGKIN'S DISEASE
     Dosage: LAST DOSE PRIOR EVENT: 19SEP11. 100MG/M2 FOR 8 CYCLES
     Route: 042
     Dates: start: 20110101, end: 20110101
  2. CYCLOPHOSPHAMIDE [Suspect]
     Indication: HODGKIN'S DISEASE
     Dosage: LAST DOSE PRIOR TO EVENT: 19SEP11, 650MG/M2 FOR 8 CYCLES
     Route: 042
     Dates: start: 20110101, end: 20110101
  3. PREDNISONE TAB [Suspect]
     Indication: HODGKIN'S DISEASE
     Dosage: LAST DOSE PRIOR TO EVENT: 19SEP11, 40MG/M2 FOR 8 CYCLES
     Route: 048
     Dates: start: 20110101, end: 20110101
  4. DOXORUBICIN HCL [Suspect]
     Indication: HODGKIN'S DISEASE
     Dosage: LAST DOSE PRIOR TO EVENT:25MG/M2, 8 CYCLES AS PER PROTOCOL
     Route: 042
     Dates: start: 20110101, end: 20110101
  5. COTRIM DS [Concomitant]
     Dosage: ON MONDAY, WED , FIRDAY
     Dates: start: 20110412, end: 20110921
  6. RITUXIMAB [Suspect]
     Indication: HODGKIN'S DISEASE
     Dosage: LAST DOSE PRIOR TO EVENT: 5SEP11 DAY1 CYCLES 5-8 FORM: (INFUSION SOLUTION).
     Route: 042
     Dates: start: 20110101, end: 20110101
  7. BLEOMYCIN SULFATE [Suspect]
     Indication: HODGKIN'S DISEASE
     Dosage: LAST DOSE PRIOR TO EVENT: 19SEP11. FOR 8 CYCLES
     Route: 042
     Dates: start: 20110101, end: 20110101
  8. PROCARBAZINE HYDROCHLORIDE [Suspect]
     Indication: HODGKIN'S DISEASE
     Dosage: LAST DOSE PRIOR EVENT: 19SEP11. FOR 8 CYCLES
     Route: 048
     Dates: start: 20110101, end: 20110101

REACTIONS (1)
  - HERPES ZOSTER [None]
